FAERS Safety Report 11294583 (Version 1)
Quarter: 2015Q3

REPORT INFORMATION
  Report Type: Spontaneous
  Country: PK (occurrence: None)
  Receive Date: 20150721
  Receipt Date: 20150721
  Transmission Date: 20151125
  Serious: No
  Sender: FDA-Public Use
  Company Number: PK-LHC-2015085

PATIENT
  Age: 52 Year
  Sex: Male
  Weight: 88 kg

DRUGS (6)
  1. OXYGEN (GENERIC) (OXYGEN) (INHALATION GAS) (OXYGEN) (VERUM) [Suspect]
     Active Substance: OXYGEN
     Indication: SPINAL LAMINECTOMY
     Route: 055
  2. ATRACURIUM [Suspect]
     Active Substance: ATRACURIUM
     Indication: SPINAL LAMINECTOMY
  3. ISOFLURANE. [Suspect]
     Active Substance: ISOFLURANE
     Indication: SPINAL LAMINECTOMY
  4. MORPHINE [Suspect]
     Active Substance: MORPHINE
     Indication: SPINAL LAMINECTOMY
  5. NITROUS OXIDE (GENERIC) (NITROUS OXIDE) (***) (NITROUS OXIDE) (VERUM) [Suspect]
     Active Substance: NITROUS OXIDE
     Indication: SPINAL LAMINECTOMY
     Route: 055
  6. PROPOFOL. [Suspect]
     Active Substance: PROPOFOL
     Indication: SPINAL LAMINECTOMY
     Route: 042

REACTIONS (4)
  - Pain [None]
  - Swelling face [None]
  - Parotid gland enlargement [None]
  - Post procedural complication [None]
